FAERS Safety Report 7116089-5 (Version None)
Quarter: 2010Q4

REPORT INFORMATION
  Report Type: 
  Country: None (occurrence: None)
  Receive Date: 20101122
  Receipt Date: 20101116
  Transmission Date: 20110411
  Serious: Yes (Death)
  Sender: FDA-Public Use
  Company Number: FR-ROCHE-742394

PATIENT
  Sex: Female

DRUGS (10)
  1. ROCEPHIN [Suspect]
     Route: 042
     Dates: start: 20100611
  2. ROCEPHIN [Suspect]
     Dosage: FORM: POWDER FOR SOLUTION FOR INFUSION
     Route: 042
     Dates: start: 20100925
  3. ROCEPHIN [Suspect]
     Route: 042
     Dates: start: 20101003, end: 20101006
  4. CLAMOXYL [Suspect]
     Dosage: FORM: POWDER AND SOLEVNT FOR INJECTABLE SOLUTION
     Route: 042
     Dates: start: 20100831
  5. CLAMOXYL [Suspect]
     Route: 042
     Dates: start: 20100930, end: 20101006
  6. CLAVENTIN [Suspect]
     Dosage: FORM: POWDER FOR INJECTABLE SOLUTION. DRUG: CLAVENTIN 3G/200MG
     Route: 042
     Dates: start: 20101007, end: 20101007
  7. TIENAM [Suspect]
     Route: 042
     Dates: start: 20100903
  8. AMIKIN [Concomitant]
     Dates: start: 20100903
  9. VANCOMYCIN HCL [Concomitant]
     Dosage: MANUFACTURER: MERCK
     Dates: start: 20100903
  10. TAZOCILLINE [Concomitant]
     Dates: start: 20100612

REACTIONS (20)
  - ACUTE RESPIRATORY FAILURE [None]
  - ANEURYSM RUPTURED [None]
  - ASPERGILLUS TEST POSITIVE [None]
  - BRADYCARDIA [None]
  - COMA [None]
  - DIALYSIS [None]
  - DISTURBANCE IN ATTENTION [None]
  - ENDOCARDITIS ENTEROCOCCAL [None]
  - HAEMOPTYSIS [None]
  - HALLUCINATION [None]
  - HEPARIN-INDUCED THROMBOCYTOPENIA [None]
  - HYPERTONIA [None]
  - LEGIONELLA INFECTION [None]
  - OVERDOSE [None]
  - RENAL FAILURE [None]
  - RENAL FAILURE ACUTE [None]
  - SEPSIS [None]
  - SHOCK [None]
  - STENOTROPHOMONAS INFECTION [None]
  - TREMOR [None]
